FAERS Safety Report 18459009 (Version 1)
Quarter: 2020Q4

REPORT INFORMATION
  Report Type: Spontaneous
  Country: US (occurrence: US)
  Receive Date: 20201103
  Receipt Date: 20201103
  Transmission Date: 20210114
  Serious: Yes (Hospitalization, Other)
  Sender: FDA-Public Use
  Company Number: US-INDIVIOR EUROPE LIMITED-INDV-126968-2020

PATIENT
  Sex: Male

DRUGS (5)
  1. SUBOXONE [Suspect]
     Active Substance: BUPRENORPHINE HYDROCHLORIDE\NALOXONE HYDROCHLORIDE
     Indication: DRUG DEPENDENCE
     Dosage: 16 MILLIGRAM, QD
     Route: 060
  2. BUPRENORPHINE GENERIC [Suspect]
     Active Substance: BUPRENORPHINE
     Indication: DRUG DEPENDENCE
     Dosage: 16 MILLIGRAM, QD
     Route: 065
  3. SUBOXONE [Suspect]
     Active Substance: BUPRENORPHINE HYDROCHLORIDE\NALOXONE HYDROCHLORIDE
     Dosage: 4 MILLIGRAM, QD
     Route: 060
  4. SUBOXONE [Suspect]
     Active Substance: BUPRENORPHINE HYDROCHLORIDE\NALOXONE HYDROCHLORIDE
     Dosage: 8 MILLIGRAM, QD
     Route: 060
  5. ULTRAM [PARACETAMOL;TRAMADOL HYDROCHLORIDE] [Suspect]
     Active Substance: ACETAMINOPHEN\TRAMADOL HYDROCHLORIDE
     Indication: ADJUVANT THERAPY
     Dosage: 50 MILLIGRAM, BID
     Route: 065

REACTIONS (18)
  - Seizure [Recovered/Resolved]
  - Jaundice [Unknown]
  - Oral administration complication [Recovered/Resolved]
  - Diarrhoea [Unknown]
  - Lyme disease [Unknown]
  - Drug hypersensitivity [Unknown]
  - Chest pain [Unknown]
  - Palpitations [Unknown]
  - Constipation [Unknown]
  - Drug withdrawal syndrome [Unknown]
  - Hepatic pain [Unknown]
  - Therapeutic response unexpected [Unknown]
  - Arthropod bite [Recovered/Resolved]
  - Ocular icterus [Unknown]
  - Hepatic enzyme increased [Recovered/Resolved]
  - Abdominal pain upper [Unknown]
  - Energy increased [Unknown]
  - Vomiting [Unknown]

NARRATIVE: CASE EVENT DATE: 2016
